FAERS Safety Report 16218276 (Version 1)
Quarter: 2019Q2

REPORT INFORMATION
  Report Type: Other
  Country: FR (occurrence: FR)
  Receive Date: 20190419
  Receipt Date: 20190419
  Transmission Date: 20190711
  Serious: Yes (Death)
  Sender: FDA-Public Use
  Company Number: FR-CELLTRION INC.-2019FR020456

PATIENT

DRUGS (11)
  1. TRUXIMA [Suspect]
     Active Substance: RITUXIMAB-ABBS
     Indication: B-CELL LYMPHOMA
     Dosage: 375 MG/M2  (DOSAGE TEXT: SOIT 600MG J1), 1 CYCLE
     Route: 042
     Dates: start: 20180611, end: 20181101
  2. BUSILVEX [Suspect]
     Active Substance: BUSULFAN
     Indication: B-CELL LYMPHOMA
     Dosage: 218 MILLIGRAM, FOR 1 CYCLE
     Route: 042
     Dates: start: 20181214, end: 20181215
  3. BICNU [Suspect]
     Active Substance: CARMUSTINE
     Indication: B-CELL LYMPHOMA
     Dosage: 160 MILLIGRAM, FOR 1 CYCLE
     Route: 042
     Dates: start: 20180613, end: 20181004
  4. BUSILVEX [Suspect]
     Active Substance: BUSULFAN
     Dosage: 109 MILLIGRAM, FOR 1 CYCLE
     Route: 042
     Dates: start: 20181216, end: 20181216
  5. ESOMEPRAZOLE. [Concomitant]
     Active Substance: ESOMEPRAZOLE MAGNESIUM
     Indication: PRODUCT USED FOR UNKNOWN INDICATION
     Dosage: 20 MG, 1 DAY (DOSAGE TEXT:1 LE SOIR)
     Route: 048
  6. CYTARABINE SANDOZ [Suspect]
     Active Substance: CYTARABINE
     Indication: B-CELL LYMPHOMA
     Dosage: 4800 MILLIGRAM, FOR 1 CYCLE
     Route: 042
     Dates: start: 20181031, end: 20181101
  7. PROPRANOLOL [Concomitant]
     Active Substance: PROPRANOLOL HYDROCHLORIDE
     Indication: TACHYCARDIA
     Dosage: 60 MILLIGRAM, 1 DAY (DOSAGE TEXT: 40 MG LE MATIN ET 20 MG LE SOIR)
     Route: 048
     Dates: start: 2016
  8. ENDOXAN [Suspect]
     Active Substance: CYCLOPHOSPHAMIDE
     Indication: B-CELL LYMPHOMA
     Dosage: 4100 MILLIGRAM, FOR 1 CYCLE
     Route: 042
     Dates: start: 20181217, end: 20181217
  9. METHOTREXATE MYLAN [Suspect]
     Active Substance: METHOTREXATE SODIUM
     Indication: B-CELL LYMPHOMA
     Dosage: 4800 MILLIGRAM,1 CYCLE
     Route: 042
     Dates: start: 20180611, end: 20181016
  10. ETOPOSIDE MYLAN [Suspect]
     Active Substance: ETOPOSIDE
     Indication: B-CELL LYMPHOMA
     Dosage: 160 MILLIGRAM, 1 CYCLE
     Route: 042
     Dates: start: 20180612, end: 20181003
  11. TEPADINA [Suspect]
     Active Substance: THIOTEPA
     Indication: B-CELL LYMPHOMA
     Dosage: 440 MILLIGRAM, FOR 1 CYCLE
     Route: 042
     Dates: start: 20181211, end: 20181213

REACTIONS (2)
  - Pulmonary fibrosis [Fatal]
  - Acute respiratory distress syndrome [Fatal]

NARRATIVE: CASE EVENT DATE: 20190215
